FAERS Safety Report 6344039-8 (Version None)
Quarter: 2009Q3

REPORT INFORMATION
  Report Type: 
  Country: None (occurrence: None)
  Receive Date: 20090904
  Receipt Date: 20090904
  Transmission Date: 20100115
  Serious: Yes (Life-Threatening, Hospitalization, Other)
  Sender: FDA-Public Use
  Company Number: None

PATIENT
  Age: 17 Year
  Sex: Female
  Weight: 58.9676 kg

DRUGS (1)
  1. ENBREL [Suspect]
     Indication: JUVENILE ARTHRITIS
     Dosage: 15 MG TWICE A WEEK
     Dates: start: 20070101, end: 20081201

REACTIONS (1)
  - ACUTE PROMYELOCYTIC LEUKAEMIA [None]
